FAERS Safety Report 7028021-3 (Version None)
Quarter: 2010Q3

REPORT INFORMATION
  Report Type: 
  Country: None (occurrence: None)
  Receive Date: 20100920
  Receipt Date: 20100909
  Transmission Date: 20110219
  Serious: Yes (Hospitalization, Other)
  Sender: FDA-Public Use
  Company Number: AECAN201000110

PATIENT
  Age: 36 Month
  Sex: Female
  Weight: 12 kg

DRUGS (8)
  1. GAMUNEX [Suspect]
     Indication: LYMPHADENITIS
     Dosage: 25 GM; QD; IV
     Route: 042
     Dates: start: 20100402, end: 20100404
  2. GAMUNEX [Suspect]
  3. CLAVULIN /01000301/ [Concomitant]
  4. CEFUROXIME [Concomitant]
  5. ASPIRIN [Concomitant]
  6. ACETAMINOPHEN [Concomitant]
  7. ADVIL LIQUI-GELS [Concomitant]
  8. CEFZIL [Concomitant]

REACTIONS (8)
  - ABDOMINAL PAIN [None]
  - CARDIAC MURMUR [None]
  - HAEMOLYTIC ANAEMIA [None]
  - MEAN CELL VOLUME DECREASED [None]
  - RED BLOOD CELL SEDIMENTATION RATE INCREASED [None]
  - RED BLOOD CELL SPHEROCYTES PRESENT [None]
  - TACHYCARDIA [None]
  - TONSILLAR HYPERTROPHY [None]
